FAERS Safety Report 8107503-7 (Version None)
Quarter: 2012Q1

REPORT INFORMATION
  Report Type: 
  Country: None (occurrence: None)
  Receive Date: 20120202
  Receipt Date: 20120130
  Transmission Date: 20120608
  Serious: Yes (Death)
  Sender: FDA-Public Use
  Company Number: CA-ROCHE-1011458

PATIENT
  Sex: Male

DRUGS (8)
  1. XELODA [Suspect]
     Indication: COLORECTAL CANCER METASTATIC
     Route: 042
  2. FISH OIL [Concomitant]
  3. PERINDOPRIL ERBUMINE [Concomitant]
  4. AMITRIPTYLINE HCL [Concomitant]
  5. ASPIRIN [Concomitant]
  6. VITAMIN B-12 [Concomitant]
  7. SYNTHROID [Concomitant]
  8. MULTI-VITAMIN [Concomitant]

REACTIONS (1)
  - DISEASE PROGRESSION [None]
